FAERS Safety Report 16905787 (Version 2)
Quarter: 2019Q4

REPORT INFORMATION
  Report Type: Report from Study
  Country: CA (occurrence: CA)
  Receive Date: 20191010
  Receipt Date: 20191211
  Transmission Date: 20200122
  Serious: Yes (Other)
  Sender: FDA-Public Use
  Company Number: CA-ACTELION-A-US2016-142571

PATIENT
  Age: 73 Year
  Sex: Female

DRUGS (20)
  1. UPTRAVI [Suspect]
     Active Substance: SELEXIPAG
     Dosage: 200 MCG, BID
     Route: 048
     Dates: start: 20181030
  2. SYNTHROID [Concomitant]
     Active Substance: LEVOTHYROXINE SODIUM
  3. VITAMIN D [Concomitant]
     Active Substance: VITAMIN D NOS
  4. GLUCOSAMINE [Concomitant]
     Active Substance: GLUCOSAMINE
  5. UPTRAVI [Suspect]
     Active Substance: SELEXIPAG
     Indication: PULMONARY ARTERIAL HYPERTENSION
     Dosage: 800 MCG BID
     Route: 048
     Dates: start: 20181030
  6. COVERSYL [Concomitant]
     Active Substance: PERINDOPRIL
  7. UPTRAVI [Suspect]
     Active Substance: SELEXIPAG
     Dosage: 600 MCG, BID
     Route: 048
  8. RIOCIGUAT. [Suspect]
     Active Substance: RIOCIGUAT
     Indication: PULMONARY ARTERIAL HYPERTENSION
     Dosage: 2 MG, TID
     Route: 048
     Dates: start: 20160815
  9. PANTOLOC [Concomitant]
     Active Substance: PANTOPRAZOLE SODIUM
  10. VENTOLIN [Concomitant]
     Active Substance: ALBUTEROL SULFATE
  11. ASA [Concomitant]
     Active Substance: ASPIRIN
  12. FERAMAX [Concomitant]
     Active Substance: IRON\POLYSACCHARIDES
  13. SENOKOT [Concomitant]
     Active Substance: SENNOSIDES
  14. CALCIUM [Concomitant]
     Active Substance: CALCIUM
  15. UPTRAVI [Suspect]
     Active Substance: SELEXIPAG
     Dosage: 1000 UNK
     Route: 048
     Dates: start: 20190225
  16. FOLIC ACID. [Concomitant]
     Active Substance: FOLIC ACID
  17. VITAMIN C [Concomitant]
     Active Substance: ASCORBIC ACID
  18. TRACLEER [Suspect]
     Active Substance: BOSENTAN
     Indication: PULMONARY ARTERIAL HYPERTENSION
     Dosage: 125 MG, BID
     Route: 048
     Dates: start: 20140821
  19. LASIX [Concomitant]
     Active Substance: FUROSEMIDE
  20. SPIRIVA [Concomitant]
     Active Substance: TIOTROPIUM BROMIDE MONOHYDRATE

REACTIONS (13)
  - Knee operation [Not Recovered/Not Resolved]
  - Unevaluable event [Recovered/Resolved]
  - Dyspnoea [Not Recovered/Not Resolved]
  - Musculoskeletal discomfort [Not Recovered/Not Resolved]
  - Cough [Not Recovered/Not Resolved]
  - Arthralgia [Not Recovered/Not Resolved]
  - Fatigue [Not Recovered/Not Resolved]
  - Nasopharyngitis [Not Recovered/Not Resolved]
  - Myalgia [Not Recovered/Not Resolved]
  - Chronic obstructive pulmonary disease [Not Recovered/Not Resolved]
  - Nausea [Not Recovered/Not Resolved]
  - Heart rate increased [Not Recovered/Not Resolved]
  - Blood pressure systolic decreased [Not Recovered/Not Resolved]

NARRATIVE: CASE EVENT DATE: 20181030
